FAERS Safety Report 8961192 (Version 1)
Quarter: 2012Q4

REPORT INFORMATION
  Report Type: 
  Country: US (occurrence: US)
  Receive Date: 20121213
  Receipt Date: 20121213
  Transmission Date: 20130627
  Serious: No
  Sender: FDA-Public Use
  Company Number: US-ALLERGAN-1213194US

PATIENT
  Age: 64 Year
  Sex: Male

DRUGS (2)
  1. LUMIGAN� 0.01% [Suspect]
     Indication: INCREASED INTRAOCULAR PRESSURE
     Dosage: UNK
     Route: 047
  2. MOBIC [Concomitant]
     Indication: PAIN
     Dosage: 15 mg, UNK
     Route: 048

REACTIONS (2)
  - Eyelid disorder [Not Recovered/Not Resolved]
  - Growth of eyelashes [Not Recovered/Not Resolved]
